FAERS Safety Report 21683498 (Version 3)
Quarter: 2023Q2

REPORT INFORMATION
  Report Type: Report from Study
  Country: US (occurrence: US)
  Receive Date: 20221205
  Receipt Date: 20230421
  Transmission Date: 20230722
  Serious: No
  Sender: FDA-Public Use
  Company Number: US-ABBVIE-22K-163-4438547-00

PATIENT
  Age: 58 Year
  Sex: Female

DRUGS (3)
  1. HUMIRA [Suspect]
     Active Substance: ADALIMUMAB
     Indication: Rheumatoid arthritis
     Dosage: CITRATE FREE?FORM STRENGTH- 40 MG
     Route: 058
  2. HUMIRA [Suspect]
     Active Substance: ADALIMUMAB
     Dosage: CITRATE FREE?FORM STRENGTH- 40 MG
     Route: 058
  3. HUMIRA [Suspect]
     Active Substance: ADALIMUMAB
     Dosage: CITRATE FREE?FORM STRENGTH- 40 MG
     Route: 058

REACTIONS (23)
  - Weight decreased [Unknown]
  - Malaise [Unknown]
  - Crying [Recovering/Resolving]
  - Fall [Unknown]
  - Headache [Recovering/Resolving]
  - Allergy to animal [Recovering/Resolving]
  - Alopecia [Recovering/Resolving]
  - Eye swelling [Unknown]
  - Pruritus [Unknown]
  - Nervousness [Recovering/Resolving]
  - Eating disorder [Unknown]
  - Rheumatoid arthritis [Recovering/Resolving]
  - Insomnia [Unknown]
  - Hypertension [Recovering/Resolving]
  - Pain [Recovering/Resolving]
  - Nausea [Recovering/Resolving]
  - Gait inability [Unknown]
  - Papule [Unknown]
  - Erythema [Recovering/Resolving]
  - Rheumatoid arthritis [Recovering/Resolving]
  - Brain fog [Unknown]
  - Skin laxity [Unknown]
  - Blood glucose decreased [Unknown]

NARRATIVE: CASE EVENT DATE: 20210601
